FAERS Safety Report 13687794 (Version 1)
Quarter: 2017Q2

REPORT INFORMATION
  Report Type: Spontaneous
  Country: US (occurrence: US)
  Receive Date: 20170623
  Receipt Date: 20170623
  Transmission Date: 20170830
  Serious: Yes (Disabling)
  Sender: FDA-Public Use
  Company Number: None

PATIENT
  Age: 43 Year
  Sex: Male
  Weight: 90 kg

DRUGS (3)
  1. HYDROCODONE [Concomitant]
     Active Substance: HYDROCODONE
  2. CIPRO [Suspect]
     Active Substance: CIPROFLOXACIN HYDROCHLORIDE
     Indication: INFECTION
     Dosage: ?          QUANTITY:1 TABLET(S);?
     Route: 048
  3. ATIVAN [Concomitant]
     Active Substance: LORAZEPAM

REACTIONS (4)
  - Pain in extremity [None]
  - Anxiety [None]
  - Musculoskeletal pain [None]
  - Impaired work ability [None]

NARRATIVE: CASE EVENT DATE: 20170503
